FAERS Safety Report 4679817-4 (Version None)
Quarter: 2005Q2

REPORT INFORMATION
  Report Type: 
  Country: None (occurrence: None)
  Receive Date: 20050531
  Receipt Date: 20050517
  Transmission Date: 20051028
  Serious: Yes (Other)
  Sender: FDA-Public Use
  Company Number: CHNY2005DE00903

PATIENT
  Age: 45 Year
  Sex: Male
  Weight: 73 kg

DRUGS (1)
  1. NICOTINE [Suspect]
     Dosage: 21 MG, QD, TRANSDERMAL
     Route: 062
     Dates: start: 20050428, end: 20050429

REACTIONS (7)
  - ABDOMINAL TENDERNESS [None]
  - DIZZINESS [None]
  - DRUG TOXICITY [None]
  - NAUSEA [None]
  - RESTLESSNESS [None]
  - TREMOR [None]
  - VOMITING [None]
